FAERS Safety Report 12924183 (Version 1)
Quarter: 2016Q4

REPORT INFORMATION
  Report Type: Spontaneous
  Country: US (occurrence: US)
  Receive Date: 20161109
  Receipt Date: 20161109
  Transmission Date: 20170207
  Serious: Yes (Other)
  Sender: FDA-Public Use
  Company Number: None

PATIENT
  Age: 73 Year
  Sex: Male

DRUGS (1)
  1. ATOVAQUONE/PROGUANIL 250MG/100MG [Suspect]
     Active Substance: ATOVAQUONE\PROGUANIL
     Indication: MALARIA PROPHYLAXIS
     Route: 048
     Dates: start: 201610

REACTIONS (6)
  - Decreased appetite [None]
  - Pyrexia [None]
  - Anxiety [None]
  - Tachycardia [None]
  - Memory impairment [None]
  - Chills [None]
